FAERS Safety Report 5017566-3 (Version None)
Quarter: 2006Q2

REPORT INFORMATION
  Report Type: 
  Country: None (occurrence: None)
  Receive Date: 20060601
  Receipt Date: 20060601
  Transmission Date: 20061013
  Serious: No
  Sender: FDA-Public Use
  Company Number: None

PATIENT
  Age: 55 Year
  Sex: Female

DRUGS (1)
  1. XYREM [Suspect]

REACTIONS (5)
  - HALLUCINATION [None]
  - IMPAIRED SELF-CARE [None]
  - MENTAL STATUS CHANGES [None]
  - PARANOIA [None]
  - TREATMENT NONCOMPLIANCE [None]
